FAERS Safety Report 6506906-1 (Version None)
Quarter: 2009Q4

REPORT INFORMATION
  Report Type: 
  Country: None (occurrence: None)
  Receive Date: 20091127
  Receipt Date: 20091005
  Transmission Date: 20100525
  Serious: Yes (Other)
  Sender: FDA-Public Use
  Company Number: US200909006329

PATIENT
  Age: 61 Year
  Sex: Female

DRUGS (10)
  1. BYETTA [Suspect]
     Indication: TYPE 2 DIABETES MELLITUS
     Dosage: 5 UG
     Dates: start: 20090908, end: 20090917
  2. METFORMIN HCL [Concomitant]
  3. ZETIA [Concomitant]
  4. ESTROGENS ESTERIFIED W/METHYLTESTOSTERONE (ESTROGENS ESTERIFIED, METHY [Concomitant]
  5. CRESTOR [Concomitant]
  6. DIOVAN [Concomitant]
  7. AMBIEN [Concomitant]
  8. AMLODIPINE BESYLATE W/BENAZEPRIL (AMLODIPINE BESILATE, BENAZEPRIL) [Concomitant]
  9. HYDROXYZINE [Concomitant]
  10. LASIX [Concomitant]

REACTIONS (2)
  - DEHYDRATION [None]
  - PANCREATITIS [None]
